FAERS Safety Report 16261438 (Version 1)
Quarter: 2019Q2

REPORT INFORMATION
  Report Type: Report from Study
  Country: ES (occurrence: ES)
  Receive Date: 20190501
  Receipt Date: 20190501
  Transmission Date: 20190711
  Serious: Yes (Hospitalization, Other)
  Sender: FDA-Public Use
  Company Number: ES-MYLANLABS-2019M1041308

PATIENT
  Age: 65 Year
  Sex: Female
  Weight: 66 kg

DRUGS (9)
  1. FORTASEC                           /00384301/ [Concomitant]
     Dosage: DOSAGE FORM: UNSPECIFIED
     Route: 065
     Dates: start: 20181013
  2. CLEXANE [Concomitant]
     Active Substance: ENOXAPARIN SODIUM
     Dosage: 160 MILLIGRAM, QD
     Dates: start: 20180810, end: 20180921
  3. CALCIUM [Concomitant]
     Active Substance: CALCIUM
     Dosage: DOSAGE FORM: UNSPECIFIED
     Route: 065
     Dates: start: 20181013
  4. FENTANYL. [Suspect]
     Active Substance: FENTANYL
     Indication: PRODUCT USED FOR UNKNOWN INDICATION
     Dosage: 25 MICROGRAM
     Route: 062
     Dates: start: 20181013
  5. INNOHEP [Concomitant]
     Active Substance: TINZAPARIN SODIUM
     Indication: EMBOLISM VENOUS
     Dosage: DOSAGE FORM: UNSPECIFIED
     Route: 065
     Dates: start: 20180627, end: 20180810
  6. METAMIZOLE [Concomitant]
     Active Substance: METAMIZOLE
     Dosage: DOSAGE FORM: UNSPECIFIED
     Route: 065
     Dates: start: 20181013
  7. OPENVAS                            /01635402/ [Concomitant]
     Active Substance: OLMESARTAN MEDOXOMIL
     Dosage: 25 MILLIGRAM
     Route: 065
     Dates: start: 20150512, end: 20181023
  8. XARELTO [Suspect]
     Active Substance: RIVAROXABAN
     Indication: EMBOLISM VENOUS
     Dosage: 20 MILLIGRAM, QD
     Route: 048
     Dates: start: 20180514, end: 20180626
  9. CLEXANE [Concomitant]
     Active Substance: ENOXAPARIN SODIUM
     Indication: EMBOLISM VENOUS
     Dosage: DOSAGE FORM: UNSPECIFIED
     Route: 065
     Dates: start: 20180925

REACTIONS (2)
  - Neoplasm [Recovered/Resolved]
  - Back pain [Not Recovered/Not Resolved]

NARRATIVE: CASE EVENT DATE: 20180913
